FAERS Safety Report 4713123-4 (Version None)
Quarter: 2005Q3

REPORT INFORMATION
  Report Type: 
  Country: None (occurrence: None)
  Receive Date: 20050713
  Receipt Date: 20050624
  Transmission Date: 20060218
  Serious: Yes (Hospitalization)
  Sender: FDA-Public Use
  Company Number: 2005CG01156

PATIENT
  Age: 91 Year
  Sex: Female

DRUGS (6)
  1. NEXIUM [Suspect]
     Route: 048
  2. NEXIUM [Suspect]
     Route: 048
  3. PREVISCAN [Suspect]
     Route: 048
     Dates: start: 20030615
  4. LEVOTHYROX [Suspect]
     Route: 048
  5. ACTONEL [Suspect]
     Route: 048
  6. CORTANCYL [Suspect]
     Route: 048

REACTIONS (2)
  - MELAENA [None]
  - RECTAL HAEMORRHAGE [None]
